FAERS Safety Report 5410994-3 (Version None)
Quarter: 2007Q3

REPORT INFORMATION
  Report Type: 
  Country: None (occurrence: None)
  Receive Date: 20070810
  Receipt Date: 20070803
  Transmission Date: 20080115
  Serious: Yes (Death)
  Sender: FDA-Public Use
  Company Number: DE-BAYER-200714496GDS

PATIENT
  Age: 41 Year
  Sex: Male
  Weight: 73 kg

DRUGS (2)
  1. ASPIRIN [Suspect]
     Indication: COMPLETED SUICIDE
     Dosage: UNIT DOSE: 325 MG
     Route: 048
  2. ETHANOL [Concomitant]
     Indication: COMPLETED SUICIDE

REACTIONS (9)
  - CEREBRAL HAEMORRHAGE [None]
  - GRAND MAL CONVULSION [None]
  - KUSSMAUL RESPIRATION [None]
  - PULMONARY OEDEMA [None]
  - TACHYPNOEA [None]
  - THERAPEUTIC AGENT TOXICITY [None]
  - TONGUE HAEMORRHAGE [None]
  - VENTRICULAR FIBRILLATION [None]
  - VENTRICULAR FLUTTER [None]
